FAERS Safety Report 11093735 (Version 1)
Quarter: 2015Q2

REPORT INFORMATION
  Report Type: Spontaneous
  Country: US (occurrence: US)
  Receive Date: 20150506
  Receipt Date: 20150506
  Transmission Date: 20150821
  Serious: Yes (Hospitalization, Other)
  Sender: FDA-Public Use
  Company Number: US-SA-2015SA059302

PATIENT
  Age: 58 Year
  Sex: Female

DRUGS (7)
  1. ALDACTONE [Suspect]
     Active Substance: SPIRONOLACTONE
     Route: 065
     Dates: end: 20150314
  2. LISINOPRIL. [Suspect]
     Active Substance: LISINOPRIL
     Indication: HYPERTENSION
     Route: 065
     Dates: end: 20150315
  3. ZOCOR [Suspect]
     Active Substance: SIMVASTATIN
     Indication: BLOOD TRIGLYCERIDES
     Route: 065
     Dates: end: 20150315
  4. NEXIUM [Suspect]
     Active Substance: ESOMEPRAZOLE MAGNESIUM
     Route: 065
  5. LYRICA [Suspect]
     Active Substance: PREGABALIN
     Indication: PAIN
     Route: 065
     Dates: start: 20150311, end: 20150314
  6. TRICOR [Suspect]
     Active Substance: FENOFIBRATE
     Route: 065
     Dates: end: 20150315
  7. LASIX [Suspect]
     Active Substance: FUROSEMIDE
     Indication: ILL-DEFINED DISORDER
     Route: 065
     Dates: end: 20150315

REACTIONS (10)
  - General physical health deterioration [Recovered/Resolved]
  - Apparent death [Unknown]
  - Malaise [Recovered/Resolved]
  - Neck pain [Unknown]
  - Blood creatine phosphokinase increased [Recovered/Resolved]
  - Musculoskeletal stiffness [Unknown]
  - Rhabdomyolysis [Unknown]
  - Gait disturbance [Recovered/Resolved]
  - Acute kidney injury [Not Recovered/Not Resolved]
  - Myalgia [Not Recovered/Not Resolved]

NARRATIVE: CASE EVENT DATE: 20150312
